FAERS Safety Report 7458038-6 (Version None)
Quarter: 2011Q2

REPORT INFORMATION
  Report Type: 
  Country: None (occurrence: None)
  Receive Date: 20110503
  Receipt Date: 20110503
  Transmission Date: 20111010
  Serious: Yes (Life-Threatening, Hospitalization, Other)
  Sender: FDA-Public Use
  Company Number: None

PATIENT
  Age: 40 Year
  Sex: Female
  Weight: 56.6996 kg

DRUGS (1)
  1. COMPAZINE [Suspect]
     Indication: ABDOMINAL PAIN
     Dosage: 10MG IV
     Route: 042
     Dates: start: 20110205, end: 20110205

REACTIONS (7)
  - HYPERSENSITIVITY [None]
  - DYSTONIA [None]
  - PSYCHOTIC DISORDER [None]
  - FACE OEDEMA [None]
  - FEELING ABNORMAL [None]
  - COMA [None]
  - JAW DISORDER [None]
